FAERS Safety Report 6280219-8 (Version None)
Quarter: 2009Q3

REPORT INFORMATION
  Report Type: 
  Country: None (occurrence: None)
  Receive Date: 20090723
  Receipt Date: 20090713
  Transmission Date: 20100115
  Serious: Yes (Hospitalization)
  Sender: FDA-Public Use
  Company Number: IL-MERCK-0907ISR00009

PATIENT
  Age: 89 Year
  Sex: Female

DRUGS (14)
  1. INVANZ [Suspect]
     Indication: KIDNEY INFECTION
     Route: 065
     Dates: start: 20090701, end: 20090704
  2. COZAAR [Concomitant]
     Route: 048
  3. PENEDIL [Concomitant]
     Route: 065
  4. FUSID (FUROSEMIDE) [Concomitant]
     Route: 065
  5. SLOW FE + FOLIC ACID [Concomitant]
     Route: 065
  6. TEVAPIRIN [Concomitant]
     Route: 065
  7. CAL-D-VITA [Concomitant]
     Route: 065
  8. ALPHA D3 [Concomitant]
     Route: 065
  9. ATENOLOL [Concomitant]
     Route: 065
  10. TRIBEMIN [Concomitant]
     Route: 065
  11. LAXADIN [Concomitant]
     Route: 065
  12. ELATROLET [Concomitant]
     Route: 065
  13. DEXAMOL PLUS [Concomitant]
     Route: 065
  14. BACTROBAN [Concomitant]
     Route: 065

REACTIONS (7)
  - CHILLS [None]
  - CONFUSIONAL STATE [None]
  - HALLUCINATION [None]
  - MENTAL IMPAIRMENT [None]
  - PARAESTHESIA [None]
  - PYREXIA [None]
  - VOMITING [None]
